FAERS Safety Report 24986940 (Version 1)
Quarter: 2025Q1

REPORT INFORMATION
  Report Type: Spontaneous
  Country: US (occurrence: US)
  Receive Date: 20250219
  Receipt Date: 20250219
  Transmission Date: 20250409
  Serious: Yes (Death, Other)
  Sender: AMGEN
  Company Number: US-AMGEN-USASP2025028595

PATIENT

DRUGS (2)
  1. PREDNISONE [Suspect]
     Active Substance: PREDNISONE
     Indication: Immunosuppression
     Route: 065
  2. RITUXIMAB [Suspect]
     Active Substance: RITUXIMAB
     Indication: Immunosuppression
     Route: 065

REACTIONS (9)
  - Death [Fatal]
  - Heart transplant rejection [Unknown]
  - Mediastinitis [Unknown]
  - Bacteraemia [Unknown]
  - Septic shock [Unknown]
  - Candida sepsis [Unknown]
  - Candida infection [Unknown]
  - Off label use [Unknown]
  - Infection [Unknown]
